FAERS Safety Report 6585122-1 (Version None)
Quarter: 2010Q1

REPORT INFORMATION
  Report Type: 
  Country: None (occurrence: None)
  Receive Date: 20100217
  Receipt Date: 20100205
  Transmission Date: 20100710
  Serious: Yes (Death)
  Sender: FDA-Public Use
  Company Number: FR-PFIZER INC-2010017802

PATIENT
  Age: 81 Year
  Sex: Male

DRUGS (6)
  1. ATARAX [Suspect]
     Dosage: 12.5 MG, 2X/DAY
     Route: 048
     Dates: start: 20080501, end: 20091207
  2. EFFEXOR [Suspect]
     Dosage: 75 MG, 1X/DAY
     Route: 048
     Dates: start: 20080501, end: 20091207
  3. PARKINANE [Suspect]
     Dosage: 2 MG, 1X/DAY
     Route: 048
     Dates: start: 20080501, end: 20091207
  4. COVERSYL [Suspect]
     Dosage: 4 MG, 1X/DAY
     Route: 048
     Dates: start: 20080501, end: 20091207
  5. KARDEGIC [Suspect]
     Dosage: 160 MG, 1X/DAY
     Route: 048
     Dates: start: 20080501, end: 20091207
  6. RISPERDAL [Suspect]
     Dosage: 1 MG, 2X/DAY
     Route: 048
     Dates: start: 20080501, end: 20091207

REACTIONS (1)
  - SUDDEN DEATH [None]
